FAERS Safety Report 8102440-6 (Version None)
Quarter: 2011Q4

REPORT INFORMATION
  Report Type: 
  Country: None (occurrence: None)
  Receive Date: 20111222
  Receipt Date: 20110922
  Transmission Date: 20120403
  Serious: Yes (Hospitalization)
  Sender: FDA-Public Use
  Company Number: UTC-010056

PATIENT
  Age: 18 Year
  Sex: Male
  Weight: 36.3 kg

DRUGS (5)
  1. LETAIRIS (AMBRISENTAN) (UNKNOWN) [Concomitant]
  2. ADCIRCA (TADALAFIL) (UNKNOWN) [Concomitant]
  3. DIURETICS (DIURETICS) (UNKNOWN) [Concomitant]
  4. TYVASO [Suspect]
     Indication: PULMONARY ARTERIAL HYPERTENSION
     Dosage: 288 MCG (72 MCG, 4 IN 1 D), INHALATION
     Route: 055
     Dates: start: 20101029
  5. REVATIO (SILDENAFIL CITRATE) (UNKNOWN) [Concomitant]

REACTIONS (1)
  - CARDIAC DISORDER [None]
